FAERS Safety Report 8610928 (Version 4)
Quarter: 2014Q3

REPORT INFORMATION
  Report Type: Spontaneous
  Country: US (occurrence: US)
  Receive Date: 20120612
  Receipt Date: 20140826
  Transmission Date: 20150326
  Serious: Yes (Hospitalization)
  Sender: FDA-Public Use
  Company Number: US-GLAXOSMITHKLINE-A0980226A

PATIENT
  Age: 82 Year
  Sex: Female

DRUGS (8)
  1. VITAMIN A + D [Concomitant]
  2. COREG CR [Suspect]
     Active Substance: CARVEDILOL PHOSPHATE
     Indication: HYPERTENSION
     Dosage: 40MG PER DAY
     Route: 048
     Dates: start: 20100614
  3. DIOVAN [Concomitant]
     Active Substance: VALSARTAN
  4. PREMARIN [Concomitant]
     Active Substance: ESTROGENS, CONJUGATED
  5. CRANBERRY. [Concomitant]
     Active Substance: CRANBERRY
  6. ASPIRIN. [Concomitant]
     Active Substance: ASPIRIN
  7. HYDRALAZINE [Concomitant]
     Active Substance: HYDRALAZINE HYDROCHLORIDE
  8. HYDROCHLOROTHIAZIDE. [Concomitant]
     Active Substance: HYDROCHLOROTHIAZIDE

REACTIONS (3)
  - Coronary artery bypass [Recovering/Resolving]
  - Cerebrovascular accident [Unknown]
  - Arterial therapeutic procedure [Unknown]

NARRATIVE: CASE EVENT DATE: 20120412
